FAERS Safety Report 17551352 (Version 1)
Quarter: 2020Q1

REPORT INFORMATION
  Report Type: Spontaneous
  Country: US (occurrence: US)
  Receive Date: 20200317
  Receipt Date: 20200317
  Transmission Date: 20200409
  Serious: No
  Sender: FDA-Public Use
  Company Number: US-UPSHER-SMITH LABORATORIES, LLC-2019USL00151

PATIENT
  Sex: Female

DRUGS (4)
  1. PREVALITE [Suspect]
     Active Substance: CHOLESTYRAMINE
     Dosage: 1 TSP, 2X/DAY
     Route: 048
  2. PREVALITE [Suspect]
     Active Substance: CHOLESTYRAMINE
     Indication: DIARRHOEA
     Dosage: 2 G, 2X/DAY
     Route: 048
     Dates: start: 2016
  3. PREVALITE [Suspect]
     Active Substance: CHOLESTYRAMINE
     Dosage: 0.5 TSP, 2X/DAY
     Route: 048
     Dates: start: 201901
  4. PREVALITE [Suspect]
     Active Substance: CHOLESTYRAMINE
     Dosage: 0.5 TBSP, 2X/DAY
     Route: 048

REACTIONS (1)
  - Constipation [Recovered/Resolved]
